FAERS Safety Report 4543848-5 (Version None)
Quarter: 2005Q1

REPORT INFORMATION
  Report Type: 
  Country: None (occurrence: None)
  Receive Date: 20050104
  Receipt Date: 20040819
  Transmission Date: 20050727
  Serious: Yes (Disabling)
  Sender: FDA-Public Use
  Company Number: JP-BRISTOL-MYERS SQUIBB COMPANY-12677365

PATIENT
  Age: 71 Year
  Sex: Female

DRUGS (5)
  1. TAXOL [Suspect]
     Indication: BREAST CANCER
     Dosage: 100 MG DOSE 19-FEB-2004 TO 15-JUL2004; 16TH DOSE 80 MG 12-AUG-2004
     Route: 042
     Dates: start: 20040812, end: 20040812
  2. SODIUM CHLORIDE [Concomitant]
     Dosage: WITH DEXTROSE
     Route: 042
     Dates: start: 20040812, end: 20040812
  3. DECADRON [Concomitant]
     Route: 042
     Dates: start: 20040812, end: 20040812
  4. GASTER [Concomitant]
     Route: 042
     Dates: start: 20040812, end: 20040812
  5. RESTAMIN [Concomitant]
     Route: 048
     Dates: start: 20040812, end: 20040812

REACTIONS (8)
  - ACUTE RESPIRATORY DISTRESS SYNDROME [None]
  - ALOPECIA [None]
  - ANAPHYLACTIC SHOCK [None]
  - CEREBELLAR INFARCTION [None]
  - HEART RATE DECREASED [None]
  - LOSS OF CONSCIOUSNESS [None]
  - RESPIRATORY ARREST [None]
  - WHITE BLOOD CELL COUNT DECREASED [None]
